FAERS Safety Report 23461815 (Version 1)
Quarter: 2024Q1

REPORT INFORMATION
  Report Type: Spontaneous
  Country: US (occurrence: US)
  Receive Date: 20240131
  Receipt Date: 20240131
  Transmission Date: 20240410
  Serious: Yes (Other)
  Sender: FDA-Public Use
  Company Number: US-Stemline Therapeutics, Inc.-2024ST000636

PATIENT

DRUGS (1)
  1. ELZONRIS [Suspect]
     Active Substance: TAGRAXOFUSP-ERZS
     Indication: Allogenic stem cell transplantation
     Route: 042

REACTIONS (3)
  - Capillary leak syndrome [Unknown]
  - Hypervolaemia [Unknown]
  - Off label use [Unknown]
